FAERS Safety Report 4379405-3 (Version None)
Quarter: 2004Q2

REPORT INFORMATION
  Report Type: 
  Country: None (occurrence: None)
  Receive Date: 20040610
  Receipt Date: 20031126
  Transmission Date: 20050107
  Serious: Yes (Hospitalization, Other)
  Sender: FDA-Public Use
  Company Number: KII-2003-0011064

PATIENT
  Age: 18 Year
  Sex: Male

DRUGS (5)
  1. MORPHINE SULFATE [Suspect]
  2. METHADONE (METHADONE) [Suspect]
  3. MARIJUANA (CANNABIS) [Suspect]
  4. AMPHETAMINE SULFATE TAB [Suspect]
  5. BENZODIAZEPINE DERIVATIVES [Suspect]

REACTIONS (8)
  - ACUTE RESPIRATORY FAILURE [None]
  - BLOOD PH DECREASED [None]
  - LETHARGY [None]
  - PCO2 INCREASED [None]
  - PNEUMONIA [None]
  - POLYSUBSTANCE ABUSE [None]
  - SOMNOLENCE [None]
  - VOMITING [None]
